FAERS Safety Report 8200514-2 (Version None)
Quarter: 2012Q1

REPORT INFORMATION
  Report Type: 
  Country: None (occurrence: None)
  Receive Date: 20120306
  Receipt Date: 20120222
  Transmission Date: 20120608
  Serious: Yes (Hospitalization)
  Sender: FDA-Public Use
  Company Number: US-20120017

PATIENT
  Sex: Male

DRUGS (2)
  1. VISIPAQUE [Suspect]
     Indication: PRODUCT USED FOR UNKNOWN INDICATION
     Dosage: 30 ML, 1 IN 1 TOTAL
     Dates: start: 20120221, end: 20120221
  2. HEXABRIX [Suspect]
     Indication: PRODUCT USED FOR UNKNOWN INDICATION
     Dosage: 24 ML, 1 IN 1 TOTAL
     Dates: start: 20120221, end: 20120221

REACTIONS (1)
  - CARDIO-RESPIRATORY ARREST [None]
